FAERS Safety Report 4505385-3 (Version None)
Quarter: 2004Q4

REPORT INFORMATION
  Report Type: 
  Country: None (occurrence: None)
  Receive Date: 20041118
  Receipt Date: 20041118
  Transmission Date: 20050328
  Serious: Yes (Hospitalization)
  Sender: FDA-Public Use
  Company Number: None

PATIENT
  Age: 34 Year
  Sex: Female

DRUGS (9)
  1. HEPARIN [Suspect]
  2. METHYLPREDNISOLONE [Concomitant]
  3. FAMOTIDINE [Concomitant]
  4. CEFTRIAXONE SODIUM [Concomitant]
  5. ARGATROBAN [Concomitant]
  6. ZOLPIDEM [Concomitant]
  7. LORAZEPAM [Concomitant]
  8. MORPHINE [Concomitant]
  9. PROMETHAZINE [Concomitant]

REACTIONS (3)
  - ANAEMIA [None]
  - HEPARIN-INDUCED THROMBOCYTOPENIA [None]
  - IDIOPATHIC THROMBOCYTOPENIC PURPURA [None]
